FAERS Safety Report 16835097 (Version 2)
Quarter: 2020Q1

REPORT INFORMATION
  Report Type: Spontaneous
  Country: US (occurrence: US)
  Receive Date: 20190920
  Receipt Date: 20200218
  Transmission Date: 20200409
  Serious: No
  Sender: FDA-Public Use
  Company Number: US-SA-2019SA257617

PATIENT
  Age: 20 Year
  Sex: Male

DRUGS (1)
  1. DUPIXENT [Suspect]
     Active Substance: DUPILUMAB
     Indication: DERMATITIS ATOPIC
     Dosage: 300 MG, QOW
     Route: 058

REACTIONS (8)
  - Pruritus [Unknown]
  - Eye discharge [Unknown]
  - Eye pruritus [Unknown]
  - Eyelid irritation [Unknown]
  - Eyelids pruritus [Unknown]
  - Alopecia [Unknown]
  - Hair growth abnormal [Unknown]
  - Eye irritation [Unknown]
